FAERS Safety Report 14853923 (Version 1)
Quarter: 2018Q2

REPORT INFORMATION
  Report Type: Spontaneous
  Country: US (occurrence: US)
  Receive Date: 20180507
  Receipt Date: 20180507
  Transmission Date: 20180711
  Serious: No
  Sender: FDA-Public Use
  Company Number: US-PFIZER INC-2018171950

PATIENT
  Age: 80 Year
  Sex: Male
  Weight: 71.66 kg

DRUGS (13)
  1. VITAMIN B12 [Suspect]
     Active Substance: CYANOCOBALAMIN
     Dosage: UNK
     Route: 065
  2. ELIQUIS [Suspect]
     Active Substance: APIXABAN
     Dosage: 2.5 MG, BID
     Route: 048
     Dates: start: 201711
  3. LISINOPRIL. [Suspect]
     Active Substance: LISINOPRIL
     Dosage: 5 MG, DAILY
     Route: 065
  4. VITAMIN D3 [Suspect]
     Active Substance: CHOLECALCIFEROL
     Dosage: 1000 IU, UNK
     Route: 065
  5. ALLOPURINOL. [Suspect]
     Active Substance: ALLOPURINOL
     Dosage: 300 MG, DAILY
     Route: 065
  6. VITAMIN E /00110501/ [Suspect]
     Active Substance: TOCOPHEROL
     Dosage: UNK
     Route: 065
  7. ASPIRIN /00002701/ [Suspect]
     Active Substance: ASPIRIN
     Dosage: 81 MG, UNK
     Route: 065
  8. VITAMIN B6 [Suspect]
     Active Substance: PYRIDOXINE HYDROCHLORIDE
     Dosage: UNK
     Route: 065
  9. ELIQUIS [Suspect]
     Active Substance: APIXABAN
     Indication: EMBOLISM VENOUS
     Dosage: 5 MG, BID
     Route: 048
  10. OMEGA 3 /01333901/ [Suspect]
     Active Substance: FISH OIL\TOCOPHEROL
     Dosage: UNK
     Route: 065
  11. FUROSEMIDE. [Suspect]
     Active Substance: FUROSEMIDE
     Dosage: 20 MG, UNK
     Route: 065
  12. BIOTIN [Suspect]
     Active Substance: BIOTIN
     Dosage: UNK
     Route: 065
  13. MELATONIN [Suspect]
     Active Substance: MELATONIN
     Dosage: 10 MG, UNK
     Route: 065

REACTIONS (1)
  - Alopecia [Unknown]
